FAERS Safety Report 8120240-8 (Version None)
Quarter: 2012Q1

REPORT INFORMATION
  Report Type: 
  Country: None (occurrence: None)
  Receive Date: 20120207
  Receipt Date: 20120131
  Transmission Date: 20120608
  Serious: Yes (Hospitalization)
  Sender: FDA-Public Use
  Company Number: DE-ABBOTT-11P-062-0866934-00

PATIENT
  Sex: Male
  Weight: 78 kg

DRUGS (14)
  1. HUMIRA [Suspect]
     Indication: RHEUMATOID ARTHRITIS
     Route: 058
     Dates: start: 20110516
  2. CORTISONE ACETATE [Concomitant]
     Indication: PRODUCT USED FOR UNKNOWN INDICATION
  3. METOPROLOL TARTRATE [Concomitant]
     Indication: HYPERTENSION
  4. SIMVASTATIN [Concomitant]
     Indication: HYPERCHOLESTEROLAEMIA
  5. PANTOPRAZOLE [Concomitant]
     Indication: PROPHYLAXIS AGAINST GASTROINTESTINAL ULCER
  6. AZATHIOPRINE [Concomitant]
     Indication: IMMUNOSUPPRESSION
  7. HUMIRA [Suspect]
     Dates: start: 20110926
  8. ALENDRONATE SODIUM [Concomitant]
     Indication: OSTEOPOROSIS
  9. MARCUMAR [Concomitant]
     Indication: THROMBOSIS PROPHYLAXIS
  10. INFLUENZA VACCINE [Concomitant]
     Indication: PRODUCT USED FOR UNKNOWN INDICATION
     Dates: start: 20111102, end: 20111102
  11. PREDNISOLONE [Concomitant]
     Indication: PRODUCT USED FOR UNKNOWN INDICATION
  12. CALCIUM +D3 [Concomitant]
     Indication: CALCINOSIS
  13. FUROSEMIDE [Concomitant]
     Indication: RENAL FAILURE
  14. LISINOPRIL [Concomitant]
     Indication: HYPERTENSION

REACTIONS (6)
  - PULMONARY OEDEMA [None]
  - DYSPNOEA [None]
  - CHEST PAIN [None]
  - PNEUMONIA [None]
  - NAUSEA [None]
  - PULMONARY CONGESTION [None]
